FAERS Safety Report 24056860 (Version 3)
Quarter: 2024Q3

REPORT INFORMATION
  Report Type: Spontaneous
  Country: JP (occurrence: JP)
  Receive Date: 20240706
  Receipt Date: 20240904
  Transmission Date: 20241017
  Serious: Yes (Hospitalization)
  Sender: ELI LILLY AND CO
  Company Number: JP-ELI_LILLY_AND_COMPANY-JP202407002877

PATIENT
  Age: 54 Year
  Sex: Male

DRUGS (4)
  1. NECITUMUMAB [Suspect]
     Active Substance: NECITUMUMAB
     Indication: Lung carcinoma cell type unspecified stage 0
     Dosage: 800 MG, UNKNOWN
     Route: 041
     Dates: start: 20240612
  2. CISPLATIN [Suspect]
     Active Substance: CISPLATIN
     Indication: Squamous cell carcinoma of lung
     Dosage: UNK
     Route: 065
     Dates: start: 20240612
  3. CORTRIL [Suspect]
     Active Substance: HYDROCORTISONE
     Indication: Adrenal insufficiency
     Dosage: 20 MG, DAILY
     Route: 065
  4. GEMCITABINE [Concomitant]
     Active Substance: GEMCITABINE
     Indication: Squamous cell carcinoma of lung
     Dosage: UNK
     Dates: start: 20240612

REACTIONS (3)
  - Neutrophil count decreased [Recovered/Resolved]
  - Electrolyte depletion [Recovered/Resolved]
  - Nausea [Recovered/Resolved]
